FAERS Safety Report 11134400 (Version 2)
Quarter: 2016Q2

REPORT INFORMATION
  Report Type: Report from Study
  Country: FR (occurrence: FR)
  Receive Date: 20150525
  Receipt Date: 20160418
  Transmission Date: 20160815
  Serious: Yes (Hospitalization)
  Sender: FDA-Public Use
  Company Number: FR-ROCHE-1579905

PATIENT
  Age: 45 Year
  Sex: Female
  Weight: 53 kg

DRUGS (2)
  1. BEVACIZUMAB [Suspect]
     Active Substance: BEVACIZUMAB
     Indication: BREAST CANCER METASTATIC
     Dosage: DATE OF LAST DOSE PRIOR TO SAE: 27/APR/2015
     Route: 042
     Dates: start: 20141223
  2. PACLITAXEL. [Suspect]
     Active Substance: PACLITAXEL
     Indication: BREAST CANCER METASTATIC
     Dosage: DATE OF LAST DOSE PRIOR TO SAE: 06/MAY/2015
     Route: 042
     Dates: start: 20141223

REACTIONS (2)
  - Diarrhoea [Recovered/Resolved]
  - General physical health deterioration [Recovered/Resolved]

NARRATIVE: CASE EVENT DATE: 20150511
